FAERS Safety Report 11981464 (Version 1)
Quarter: 2016Q1

REPORT INFORMATION
  Report Type: Spontaneous
  Country: JP (occurrence: JP)
  Receive Date: 20160130
  Receipt Date: 20160130
  Transmission Date: 20160526
  Serious: Yes (Death, Other)
  Sender: FDA-Public Use
  Company Number: JP-BRISTOL-MYERS SQUIBB COMPANY-BMS-2016-006547

PATIENT
  Age: 73 Year
  Sex: Male

DRUGS (1)
  1. ERBITUX [Suspect]
     Active Substance: CETUXIMAB
     Indication: LARYNGEAL CANCER
     Dosage: 5 MG/ML, UNK
     Route: 041
     Dates: start: 20151014, end: 20151014

REACTIONS (3)
  - Gastrointestinal inflammation [Fatal]
  - Hepatic failure [Fatal]
  - Cytomegalovirus gastrointestinal ulcer [Fatal]

NARRATIVE: CASE EVENT DATE: 20151217
